FAERS Safety Report 5974531-7 (Version None)
Quarter: 2008Q4

REPORT INFORMATION
  Report Type: 
  Country: None (occurrence: None)
  Receive Date: 20081201
  Receipt Date: 20080131
  Transmission Date: 20090506
  Serious: No
  Sender: FDA-Public Use
  Company Number: US-AMGEN-KDL260621

PATIENT
  Sex: Female
  Weight: 68.1 kg

DRUGS (7)
  1. ENBREL [Suspect]
     Indication: RHEUMATOID ARTHRITIS
     Route: 058
     Dates: start: 20060901
  2. METHOTREXATE [Concomitant]
     Route: 048
     Dates: start: 20060401
  3. PAXIL [Concomitant]
     Dates: start: 20040301
  4. LAMICTAL [Concomitant]
     Dates: start: 20070601
  5. FOLIC ACID [Concomitant]
     Dates: start: 20060401
  6. UNSPECIFIED CONTRACEPTIVE [Concomitant]
     Dates: start: 20071001
  7. IBUPROFEN TABLETS [Concomitant]

REACTIONS (2)
  - DYSPNOEA [None]
  - NASOPHARYNGITIS [None]
